FAERS Safety Report 11971942 (Version 3)
Quarter: 2016Q2

REPORT INFORMATION
  Report Type: Spontaneous
  Country: US (occurrence: US)
  Receive Date: 20160128
  Receipt Date: 20160520
  Transmission Date: 20160815
  Serious: No
  Sender: FDA-Public Use
  Company Number: US-PFIZER INC-2016038479

PATIENT
  Age: 48 Year
  Sex: Female

DRUGS (7)
  1. LYRICA [Suspect]
     Active Substance: PREGABALIN
     Indication: PARAESTHESIA
     Dosage: 50 MG, 3X/DAY
     Dates: start: 20160118
  2. GABAPENTIN. [Suspect]
     Active Substance: GABAPENTIN
     Indication: NEUROPATHY PERIPHERAL
  3. NORTRIPTYLINE [Concomitant]
     Active Substance: NORTRIPTYLINE
     Indication: HEADACHE
     Dosage: 25 MG, UNK
     Dates: start: 20150807
  4. SOMA [Concomitant]
     Active Substance: CARISOPRODOL
     Indication: SCIATICA
     Dosage: 350 MG, AS NEEDED (QID)
     Dates: start: 201509
  5. GABAPENTIN. [Suspect]
     Active Substance: GABAPENTIN
     Indication: PAIN IN EXTREMITY
     Dosage: 200 MG, 3X/DAY (100MG-2 CAPSULES TID)
     Route: 048
     Dates: start: 201512, end: 201601
  6. LYRICA [Suspect]
     Active Substance: PREGABALIN
     Indication: PAIN IN EXTREMITY
  7. GABAPENTIN. [Suspect]
     Active Substance: GABAPENTIN
     Indication: PARAESTHESIA
     Dosage: 1200 MG, DAILY
     Dates: start: 20151218

REACTIONS (12)
  - Product use issue [Unknown]
  - Mood altered [Unknown]
  - Dysphemia [Unknown]
  - Speech disorder [Unknown]
  - Feeling abnormal [Unknown]
  - Balance disorder [Unknown]
  - Headache [Unknown]
  - Mood swings [Unknown]
  - Dysgraphia [Unknown]
  - Memory impairment [Unknown]
  - Skin fissures [Unknown]
  - Insomnia [Unknown]

NARRATIVE: CASE EVENT DATE: 201512
